FAERS Safety Report 8417669-7 (Version None)
Quarter: 2012Q2

REPORT INFORMATION
  Report Type: 
  Country: None (occurrence: None)
  Receive Date: 20120606
  Receipt Date: 20120528
  Transmission Date: 20120825
  Serious: Yes (Death)
  Sender: FDA-Public Use
  Company Number: JP-BRISTOL-MYERS SQUIBB COMPANY-16659914

PATIENT

DRUGS (1)
  1. ABILIFY [Suspect]
     Dosage: ABILIFY ORAL SOLUTION 0.1%
     Route: 048

REACTIONS (1)
  - DEATH [None]
